FAERS Safety Report 4761119-9 (Version None)
Quarter: 2005Q3

REPORT INFORMATION
  Report Type: 
  Country: None (occurrence: None)
  Receive Date: 20050901
  Receipt Date: 20050822
  Transmission Date: 20060218
  Serious: Yes (Death)
  Sender: FDA-Public Use
  Company Number: 2005S1007983

PATIENT

DRUGS (1)
  1. FENTANYL [Suspect]
     Dosage: TDER
     Route: 062

REACTIONS (1)
  - VICTIM OF HOMICIDE [None]
